FAERS Safety Report 20730557 (Version 1)
Quarter: 2022Q2

REPORT INFORMATION
  Report Type: Spontaneous
  Country: US (occurrence: None)
  Receive Date: 20220419
  Receipt Date: 20220419
  Transmission Date: 20220721
  Serious: No
  Sender: FDA-Public Use
  Company Number: None

PATIENT

DRUGS (1)
  1. DOPAMINE [Suspect]
     Active Substance: DOPAMINE HYDROCHLORIDE

REACTIONS (1)
  - Product packaging confusion [None]
